FAERS Safety Report 16175111 (Version 2)
Quarter: 2019Q2

REPORT INFORMATION
  Report Type: Spontaneous
  Country: NL (occurrence: NL)
  Receive Date: 20190409
  Receipt Date: 20190501
  Transmission Date: 20190711
  Serious: Yes (Other)
  Sender: FDA-Public Use
  Company Number: NL-PFIZER INC-2019141869

PATIENT
  Age: 59 Year
  Sex: Female

DRUGS (3)
  1. MORPHINE [Concomitant]
     Active Substance: MORPHINE
     Dosage: UNK
     Route: 065
  2. OXYCODONE/PARACETAMOL [Concomitant]
     Dosage: UNK
     Route: 065
  3. PREGABALIN. [Suspect]
     Active Substance: PREGABALIN
     Indication: FIBROMYALGIA
     Dosage: 75 MG, 2X/DAY
     Route: 065

REACTIONS (8)
  - Blindness [Recovered/Resolved]
  - Back pain [Unknown]
  - Foreign body in eye [Unknown]
  - Impaired driving ability [Unknown]
  - Colour blindness acquired [Recovered/Resolved]
  - Visual impairment [Unknown]
  - Visual acuity reduced [Unknown]
  - Cataract [Recovered/Resolved]
